FAERS Safety Report 5249308-0 (Version None)
Quarter: 2007Q1

REPORT INFORMATION
  Report Type: 
  Country: None (occurrence: None)
  Receive Date: 20070223
  Receipt Date: 20070208
  Transmission Date: 20070707
  Serious: Yes (Disabling)
  Sender: FDA-Public Use
  Company Number: CNL-125181-NL

PATIENT
  Age: 63 Year
  Sex: Male

DRUGS (10)
  1. MIRTAZAPINE [Suspect]
     Indication: DEPRESSION
     Dosage: 60 MG
     Route: 048
     Dates: start: 20010108, end: 20010311
  2. CELECOXIB [Concomitant]
  3. LITHIUM CARBONATE [Concomitant]
  4. TRAMADOL HCL [Suspect]
     Indication: ARTHRALGIA
     Dosage: 250 MG
     Route: 048
     Dates: start: 20010302, end: 20010304
  5. LITHIUM CARBONATE [Suspect]
     Dosage: 675 MG
     Route: 048
     Dates: start: 20010206, end: 20010328
  6. VALERIANA OFFICINALIS EXTRACT [Concomitant]
  7. TIZANIDINE HCL [Concomitant]
  8. LORAZEPAM [Concomitant]
  9. LACTULOSE [Concomitant]
  10. PIRETANIDE SODIUM [Concomitant]

REACTIONS (2)
  - DRUG INTERACTION [None]
  - SEROTONIN SYNDROME [None]
